FAERS Safety Report 16799349 (Version 1)
Quarter: 2019Q3

REPORT INFORMATION
  Report Type: Spontaneous
  Country: US (occurrence: US)
  Receive Date: 20190722
  Receipt Date: 20190722
  Transmission Date: 20191005
  Serious: No
  Sender: FDA-Public Use
  Company Number: None

PATIENT
  Age: 36 Year
  Sex: Male

DRUGS (1)
  1. OCTREOTIDE 200MCG/ML MDV 5 ML [Suspect]
     Active Substance: OCTREOTIDE
     Dosage: ?          OTHER STRENGTH:200/5 UG/ML;?
     Route: 058
     Dates: start: 20180711

REACTIONS (1)
  - Product dispensing error [None]

NARRATIVE: CASE EVENT DATE: 20190722
